FAERS Safety Report 13230166 (Version 1)
Quarter: 2017Q1

REPORT INFORMATION
  Report Type: Spontaneous
  Country: US (occurrence: US)
  Receive Date: 20170214
  Receipt Date: 20170214
  Transmission Date: 20170428
  Serious: Yes (Disabling)
  Sender: FDA-Public Use
  Company Number: US-ACORDA-ACO_133622_2017

PATIENT

DRUGS (1)
  1. AMPYRA [Suspect]
     Active Substance: DALFAMPRIDINE
     Indication: GAIT DISTURBANCE
     Dosage: UNK
     Route: 065

REACTIONS (6)
  - Disability [Unknown]
  - Abasia [Unknown]
  - Diplegia [Unknown]
  - Therapy cessation [Unknown]
  - Dysstasia [Unknown]
  - Emotional distress [Unknown]
